FAERS Safety Report 7368605 (Version 5)
Quarter: 2012Q4

REPORT INFORMATION
  Report Type: 
  Country: JP (occurrence: JP)
  Receive Date: 20100428
  Receipt Date: 20120925
  Transmission Date: 20130627
  Serious: Yes (Disabling, Other)
  Sender: FDA-Public Use
  Company Number: JP-NOVOPROD-307554

PATIENT
  Age: 14 Year
  Sex: Male
  Weight: 49 kg

DRUGS (7)
  1. NORDITROPIN NORDIFLEX [Suspect]
     Indication: GROWTH HORMONE DEFICIENCY
     Dosage: 0.6 mg, qd
     Route: 058
     Dates: start: 20080121, end: 20080521
  2. NORDITROPIN NORDIFLEX [Suspect]
     Dosage: 1 mg, qd
     Route: 058
     Dates: start: 20080522, end: 20100315
  3. CORTRIL                            /00028601/ [Concomitant]
     Dosage: 12 mg, qd
     Route: 048
     Dates: start: 199912
  4. THYRADIN S [Concomitant]
     Dosage: UNK
     Route: 048
     Dates: start: 199912
  5. DESMOPRESIN [Concomitant]
     Dosage: 2.5 ug, UNK
     Route: 045
     Dates: start: 199912
  6. ENARMON                            /00069201/ [Concomitant]
     Dosage: 62.5 mg, qd
     Route: 030
     Dates: start: 20100218, end: 20100315
  7. ENARMON                            /00069201/ [Concomitant]
     Dosage: 0.25 ampule/month
     Dates: start: 201208

REACTIONS (2)
  - Craniopharyngioma [Not Recovered/Not Resolved]
  - Condition aggravated [Not Recovered/Not Resolved]
